FAERS Safety Report 20035369 (Version 1)
Quarter: 2021Q4

REPORT INFORMATION
  Report Type: Spontaneous
  Country: FR (occurrence: FR)
  Receive Date: 20211104
  Receipt Date: 20211104
  Transmission Date: 20220303
  Serious: Yes (Other)
  Sender: FDA-Public Use
  Company Number: FR-OTSUKA-2016_013977

PATIENT
  Sex: Female

DRUGS (1)
  1. ABILIFY MAINTENA [Suspect]
     Active Substance: ARIPIPRAZOLE
     Indication: Product used for unknown indication
     Dosage: 300 MG ONCE/28 DAYS
     Route: 030
     Dates: start: 201602

REACTIONS (4)
  - Intellectual disability [Unknown]
  - Reduced facial expression [Unknown]
  - Hypersomnia [Unknown]
  - Underdose [Unknown]
